FAERS Safety Report 14492237 (Version 1)
Quarter: 2018Q1

REPORT INFORMATION
  Report Type: Spontaneous
  Country: US (occurrence: US)
  Receive Date: 20180205
  Receipt Date: 20180205
  Transmission Date: 20180509
  Serious: No
  Sender: FDA-Public Use
  Company Number: None

PATIENT
  Age: 63 Year
  Sex: Male

DRUGS (11)
  1. ATIVAN [Concomitant]
     Active Substance: LORAZEPAM
  2. ZOFRAN [Concomitant]
     Active Substance: ONDANSETRON HYDROCHLORIDE
  3. ASPIRIN. [Concomitant]
     Active Substance: ASPIRIN
  4. GLIPIZIDE. [Concomitant]
     Active Substance: GLIPIZIDE
  5. PROCHLORPERAZINE. [Concomitant]
     Active Substance: PROCHLORPERAZINE
  6. HYDROCORTISONE. [Concomitant]
     Active Substance: HYDROCORTISONE
  7. LONSURF [Suspect]
     Active Substance: TIPIRACIL HYDROCHLORIDE\TRIFLURIDINE
     Dosage: 1-5+8-12
     Route: 048
     Dates: start: 20171220
  8. CLINDAMYCIN. [Concomitant]
     Active Substance: CLINDAMYCIN
  9. MULTIVITAMIN [Concomitant]
     Active Substance: VITAMINS
  10. DOXYCYCL HYC 100 MG GENERIC FOR VIBRA TAB 100 MG [Concomitant]
     Active Substance: DOXYCYCLINE HYCLATE
  11. LISINOPRIL. [Concomitant]
     Active Substance: LISINOPRIL

REACTIONS (1)
  - Transfusion [None]

NARRATIVE: CASE EVENT DATE: 20180205
